FAERS Safety Report 15478448 (Version 1)
Quarter: 2018Q4

REPORT INFORMATION
  Report Type: Spontaneous
  Country: US (occurrence: US)
  Receive Date: 20181009
  Receipt Date: 20181009
  Transmission Date: 20190205
  Serious: Yes (Hospitalization)
  Sender: FDA-Public Use
  Company Number: US-JNJFOC-20181006936

PATIENT
  Age: 80 Year
  Sex: Male

DRUGS (22)
  1. NYSTATIN. [Concomitant]
     Active Substance: NYSTATIN
  2. BIOTIN [Concomitant]
     Active Substance: BIOTIN
  3. ATARAX [Concomitant]
     Active Substance: HYDROXYZINE HYDROCHLORIDE
  4. LEVOTHYROXINE. [Concomitant]
     Active Substance: LEVOTHYROXINE
  5. LORATADINE. [Concomitant]
     Active Substance: LORATADINE
  6. NOVOLOG [Concomitant]
     Active Substance: INSULIN ASPART
  7. COLACE [Concomitant]
     Active Substance: DOCUSATE SODIUM
  8. LANTUS [Concomitant]
     Active Substance: INSULIN GLARGINE
  9. CENTRUM SILVER [Concomitant]
     Active Substance: MINERALS\VITAMINS
  10. FERROUS SULFATE. [Concomitant]
     Active Substance: FERROUS SULFATE
  11. METOPROLOL SUCCINATE. [Concomitant]
     Active Substance: METOPROLOL SUCCINATE
  12. PSYLLIUM [Concomitant]
     Active Substance: PLANTAGO SEED
  13. FINASTERIDE. [Concomitant]
     Active Substance: FINASTERIDE
  14. ALFUZOSIN [Concomitant]
     Active Substance: ALFUZOSIN
  15. IMBRUVICA [Suspect]
     Active Substance: IBRUTINIB
     Indication: PRODUCT USED FOR UNKNOWN INDICATION
     Route: 048
  16. BENADRYL [Concomitant]
     Active Substance: DIPHENHYDRAMINE HYDROCHLORIDE
  17. LIDOCAINE. [Concomitant]
     Active Substance: LIDOCAINE
  18. ASPIRIN. [Concomitant]
     Active Substance: ASPIRIN
  19. MIRALAX [Concomitant]
     Active Substance: POLYETHYLENE GLYCOL 3350
  20. BIOTIN [Concomitant]
     Active Substance: BIOTIN
  21. FLONASE [Concomitant]
     Active Substance: FLUTICASONE PROPIONATE
  22. MOTRIN [Concomitant]
     Active Substance: IBUPROFEN

REACTIONS (4)
  - Incorrect dose administered [Unknown]
  - Fall [Unknown]
  - Upper limb fracture [Unknown]
  - Off label use [Unknown]

NARRATIVE: CASE EVENT DATE: 20180903
